FAERS Safety Report 11811892 (Version 1)
Quarter: 2015Q4

REPORT INFORMATION
  Report Type: Spontaneous
  Country: JP (occurrence: JP)
  Receive Date: 20151208
  Receipt Date: 20151208
  Transmission Date: 20160305
  Serious: Yes (Other)
  Sender: FDA-Public Use
  Company Number: JP-PFIZER INC-2015422135

PATIENT
  Age: 62 Year
  Sex: Female

DRUGS (4)
  1. METHYLPREDNISOLONE SODIUM SUCCINATE. [Suspect]
     Active Substance: METHYLPREDNISOLONE SODIUM SUCCINATE
     Indication: EYE MOVEMENT DISORDER
  2. THIAMAZOLE [Suspect]
     Active Substance: METHIMAZOLE
     Indication: BASEDOW^S DISEASE
     Dosage: 15 MG, DAILY
  3. THIAMAZOLE [Suspect]
     Active Substance: METHIMAZOLE
     Indication: ENDOCRINE OPHTHALMOPATHY
  4. METHYLPREDNISOLONE SODIUM SUCCINATE. [Suspect]
     Active Substance: METHYLPREDNISOLONE SODIUM SUCCINATE
     Indication: DIPLOPIA
     Dosage: 1000 MG, DAILY

REACTIONS (1)
  - Liver disorder [Recovered/Resolved]
